FAERS Safety Report 9337654 (Version 1)
Quarter: 2013Q2

REPORT INFORMATION
  Report Type: Spontaneous
  Country: AU (occurrence: AU)
  Receive Date: 20130607
  Receipt Date: 20130607
  Transmission Date: 20140414
  Serious: Yes (Disabling, Other)
  Sender: FDA-Public Use
  Company Number: AU-009507513-1306AUS002444

PATIENT
  Age: 43 Year
  Sex: Female

DRUGS (1)
  1. DIPROSONE [Suspect]
     Indication: RASH
     Dosage: UNK, BID
     Dates: start: 1993

REACTIONS (2)
  - Skin disorder [Not Recovered/Not Resolved]
  - Aphasia [Not Recovered/Not Resolved]
